FAERS Safety Report 17906352 (Version 1)
Quarter: 2020Q2

REPORT INFORMATION
  Report Type: Spontaneous
  Country: US (occurrence: US)
  Receive Date: 20200616
  Receipt Date: 20200616
  Transmission Date: 20200714
  Serious: No
  Sender: FDA-Public Use
  Company Number: US-ROCHE-2364996

PATIENT
  Age: 63 Year
  Sex: Female

DRUGS (2)
  1. ACTEMRA [Suspect]
     Active Substance: TOCILIZUMAB
     Indication: RHEUMATOID ARTHRITIS
     Dosage: ONCE A WEEK ;ONGOING: YES
     Route: 058
     Dates: start: 20190529
  2. IMURAN [Concomitant]
     Active Substance: AZATHIOPRINE
     Dosage: HALF TABLET
     Route: 065
     Dates: start: 20190718

REACTIONS (4)
  - Abdominal discomfort [Unknown]
  - Product quality issue [Unknown]
  - Product packaging issue [Unknown]
  - Product dose omission [Unknown]

NARRATIVE: CASE EVENT DATE: 20190725
